FAERS Safety Report 8019763-1 (Version None)
Quarter: 2012Q1

REPORT INFORMATION
  Report Type: 
  Country: None (occurrence: None)
  Receive Date: 20120103
  Receipt Date: 20111222
  Transmission Date: 20120608
  Serious: Yes (Hospitalization)
  Sender: FDA-Public Use
  Company Number: IT-GLAXOSMITHKLINE-B0772428A

PATIENT
  Age: 81 Year
  Sex: Female

DRUGS (4)
  1. DIGOXIN [Suspect]
     Dosage: .125MG PER DAY
     Route: 065
  2. FUROSEMIDE [Concomitant]
     Dosage: 25MG PER DAY
     Route: 065
  3. METFORMIN HCL [Concomitant]
     Dosage: 3000MG PER DAY
  4. RAMIPRIL [Suspect]
     Dosage: 10MG PER DAY
     Route: 065

REACTIONS (8)
  - ELECTROCARDIOGRAM QT SHORTENED [None]
  - BLOOD CREATININE INCREASED [None]
  - TOXICITY TO VARIOUS AGENTS [None]
  - ASTHENIA [None]
  - DYSPNOEA [None]
  - BLOOD UREA INCREASED [None]
  - BLOOD GLUCOSE INCREASED [None]
  - HYPERKALAEMIA [None]
